FAERS Safety Report 5816110-8 (Version None)
Quarter: 2008Q3

REPORT INFORMATION
  Report Type: 
  Country: None (occurrence: None)
  Receive Date: 20080716
  Receipt Date: 20080716
  Transmission Date: 20090109
  Serious: Yes (Other)
  Sender: FDA-Public Use
  Company Number: None

PATIENT
  Age: 20 Year
  Sex: Female
  Weight: 72.5755 kg

DRUGS (1)
  1. MIRENA [Suspect]
     Indication: CONTRACEPTION
     Dates: start: 20060120, end: 20070525

REACTIONS (4)
  - ABDOMINAL DISCOMFORT [None]
  - APPENDICECTOMY [None]
  - CONDITION AGGRAVATED [None]
  - OVARIAN CYST [None]
